FAERS Safety Report 19605171 (Version 1)
Quarter: 2021Q3

REPORT INFORMATION
  Report Type: Spontaneous
  Country: GB (occurrence: GB)
  Receive Date: 20210723
  Receipt Date: 20210723
  Transmission Date: 20211014
  Serious: Yes (Death, Life-Threatening, Hospitalization, Other)
  Sender: FDA-Public Use
  Company Number: GB-TEVA-2021-GB-1934604

PATIENT
  Sex: Male

DRUGS (5)
  1. DEXAMETHASONE. [Suspect]
     Active Substance: DEXAMETHASONE
     Indication: PRODUCT USED FOR UNKNOWN INDICATION
     Dosage: 4 MILLIGRAM DAILY;
     Route: 065
     Dates: start: 20210626
  2. SANDOSTATIN LAR DEPOT [Suspect]
     Active Substance: OCTREOTIDE ACETATE
     Indication: NEUROENDOCRINE TUMOUR
     Dosage: 30 MG
     Route: 030
  3. TRAMADOL. [Suspect]
     Active Substance: TRAMADOL
     Indication: PRODUCT USED FOR UNKNOWN INDICATION
     Dosage: 2 TRAMADOL AS ADVISED BY GP, UNIT DOSE : 2 DOSAGE FORMS
  4. OXYCODONE HYDROCHLORIDE. [Suspect]
     Active Substance: OXYCODONE HYDROCHLORIDE
     Indication: PRODUCT USED FOR UNKNOWN INDICATION
     Dosage: 24 ML DAILY; 5ML EVERY 4 HOURS, UNIT DOSE : 4 ML
     Dates: start: 20210626, end: 20210627
  5. LABS LICONSA OMEPRAZOLE [Suspect]
     Active Substance: OMEPRAZOLE
     Indication: PRODUCT USED FOR UNKNOWN INDICATION
     Dosage: 20 MILLIGRAM DAILY;
     Route: 065
     Dates: start: 20210626

REACTIONS (9)
  - General physical health deterioration [Fatal]
  - Arthralgia [Unknown]
  - Erythema [Unknown]
  - Death [Fatal]
  - Dysarthria [Unknown]
  - Renal disorder [Fatal]
  - Cerebrovascular accident [Unknown]
  - Circulatory collapse [Fatal]
  - Seizure [Fatal]

NARRATIVE: CASE EVENT DATE: 20210626
